FAERS Safety Report 6674065-0 (Version None)
Quarter: 2010Q2

REPORT INFORMATION
  Report Type: 
  Country: None (occurrence: None)
  Receive Date: 20100409
  Receipt Date: 20100324
  Transmission Date: 20101027
  Serious: No
  Sender: FDA-Public Use
  Company Number: GB-JNJFOC-20100308047

PATIENT
  Age: 18 Month

DRUGS (2)
  1. DURAGESIC-100 [Suspect]
     Indication: PALLIATIVE CARE
     Route: 062
  2. DURAGESIC-100 [Suspect]
     Route: 062

REACTIONS (2)
  - OFF LABEL USE [None]
  - SEDATION [None]
